FAERS Safety Report 5134468-2 (Version None)
Quarter: 2006Q4

REPORT INFORMATION
  Report Type: 
  Country: None (occurrence: None)
  Receive Date: 20061025
  Receipt Date: 20061013
  Transmission Date: 20070319
  Serious: Yes (Death)
  Sender: FDA-Public Use
  Company Number: GBWYE227713OCT06

PATIENT
  Age: 75 Year
  Sex: Female

DRUGS (3)
  1. ENBREL [Suspect]
     Indication: RHEUMATOID ARTHRITIS
     Route: 058
     Dates: start: 20050208, end: 20051214
  2. DICLOFENAC [Concomitant]
     Dosage: UNKNOWN
     Route: 048
  3. AMITRIPTYLINE HCL [Concomitant]
     Dosage: UNKNOWN
     Route: 048

REACTIONS (3)
  - METASTASES TO LIVER [None]
  - METASTASES TO SPINE [None]
  - METASTASIS [None]
